FAERS Safety Report 5077961-3 (Version None)
Quarter: 2006Q3

REPORT INFORMATION
  Report Type: 
  Country: None (occurrence: None)
  Receive Date: 20060714
  Receipt Date: 20050818
  Transmission Date: 20061208
  Serious: Yes (Other)
  Sender: FDA-Public Use
  Company Number: 20041

PATIENT
  Age: 19 Year
  Sex: Male
  Weight: 80 kg

DRUGS (2)
  1. VECURONIUM BROMIDE [Suspect]
     Indication: BRONCHOSCOPY
     Dosage: 10 MG X 2 WITHIN 10 MINUTES, IV P
     Route: 042
     Dates: start: 20050817
  2. VECURONIUM BROMIDE [Suspect]
     Indication: PARALYSIS
     Dosage: 10 MG X 2 WITHIN 10 MINUTES, IV P
     Route: 042
     Dates: start: 20050817

REACTIONS (1)
  - DRUG INEFFECTIVE [None]
